FAERS Safety Report 5801397-8 (Version None)
Quarter: 2008Q2

REPORT INFORMATION
  Report Type: 
  Country: None (occurrence: None)
  Receive Date: 20080626
  Receipt Date: 20070717
  Transmission Date: 20081010
  Serious: Yes (Other)
  Sender: FDA-Public Use
  Company Number: 507512

PATIENT
  Age: 62 Year
  Sex: Female

DRUGS (1)
  1. XELODA [Suspect]
     Indication: COLORECTAL CANCER
     Dosage: 10 DOSE FORM DAILY ORAL
     Route: 048
     Dates: start: 20070401

REACTIONS (8)
  - CEREBROVASCULAR ACCIDENT [None]
  - DIARRHOEA [None]
  - EMOTIONAL DISORDER [None]
  - GAIT DISTURBANCE [None]
  - HYPERTENSION [None]
  - HYPOAESTHESIA [None]
  - JOINT RANGE OF MOTION DECREASED [None]
  - PARAESTHESIA [None]
